FAERS Safety Report 13901004 (Version 2)
Quarter: 2018Q3

REPORT INFORMATION
  Report Type: Spontaneous
  Country: US (occurrence: US)
  Receive Date: 20170824
  Receipt Date: 20180727
  Transmission Date: 20181010
  Serious: No
  Sender: FDA-Public Use
  Company Number: US-STRIDES ARCOLAB LIMITED-2017SP011816

PATIENT

DRUGS (2)
  1. RANITIDINE TABLETS, USP 150 MG (OTC) [Suspect]
     Active Substance: RANITIDINE
     Indication: GASTROOESOPHAGEAL REFLUX DISEASE
     Dosage: 1 TABLETS, PER DAY
     Route: 065
     Dates: start: 201707
  2. RANITIDINE TABLETS, USP 150 MG (OTC) [Suspect]
     Active Substance: RANITIDINE
     Dosage: 2 TABLETS, PER DAY, PRN
     Route: 065

REACTIONS (1)
  - Drug ineffective [Unknown]
